FAERS Safety Report 6651364-X (Version None)
Quarter: 2010Q1

REPORT INFORMATION
  Report Type: 
  Country: None (occurrence: None)
  Receive Date: 20100325
  Receipt Date: 20100311
  Transmission Date: 20100710
  Serious: Yes (Hospitalization)
  Sender: FDA-Public Use
  Company Number: FR-JNJFOC-20100304674

PATIENT
  Age: 72 Year
  Sex: Male

DRUGS (2)
  1. TRAMADOL HCL [Suspect]
     Indication: PROCEDURAL PAIN
     Route: 065
  2. TRAMADOL HCL [Suspect]
     Route: 065

REACTIONS (1)
  - JAUNDICE [None]
